FAERS Safety Report 13349066 (Version 3)
Quarter: 2018Q1

REPORT INFORMATION
  Report Type: Report from Study
  Country: IT (occurrence: IT)
  Receive Date: 20170320
  Receipt Date: 20180216
  Transmission Date: 20180508
  Serious: Yes (Hospitalization)
  Sender: FDA-Public Use
  Company Number: IT-ACCORD-049158

PATIENT
  Age: 58 Year
  Sex: Male

DRUGS (9)
  1. METFORMIN [Concomitant]
     Active Substance: METFORMIN HYDROCHLORIDE
     Route: 048
  2. QUETIAPINE. [Suspect]
     Active Substance: QUETIAPINE
     Route: 048
     Dates: start: 20160301, end: 20160301
  3. ALLOPURINOL. [Concomitant]
     Active Substance: ALLOPURINOL
  4. ENALAPRIL [Concomitant]
     Active Substance: ENALAPRIL
     Route: 048
  5. TRITTICO [Concomitant]
     Active Substance: TRAZODONE HYDROCHLORIDE
     Route: 048
  6. GLIMEPIRIDE. [Concomitant]
     Active Substance: GLIMEPIRIDE
     Route: 048
  7. CITALOPRAM [Concomitant]
     Active Substance: CITALOPRAM HYDROBROMIDE
  8. LORAZEPAM. [Concomitant]
     Active Substance: LORAZEPAM
     Route: 048
  9. ETILTOX [Concomitant]
     Active Substance: DISULFIRAM
     Dosage: 200 MG
     Route: 048

REACTIONS (5)
  - Troponin I increased [Unknown]
  - Chest pain [Unknown]
  - Alcohol abuse [Unknown]
  - Electrocardiogram repolarisation abnormality [Unknown]
  - Drug abuse [Unknown]

NARRATIVE: CASE EVENT DATE: 20160301
